FAERS Safety Report 9771469 (Version 3)
Quarter: 2014Q1

REPORT INFORMATION
  Report Type: Spontaneous
  Country: US (occurrence: US)
  Receive Date: 20131219
  Receipt Date: 20140114
  Transmission Date: 20141002
  Serious: Yes (Hospitalization, Other)
  Sender: FDA-Public Use
  Company Number: US-BEH-2012034208

PATIENT
  Age: 33 Year
  Sex: Male
  Weight: 77 kg

DRUGS (24)
  1. PRIVIGEN [Suspect]
     Dosage: PER MFG. GUIDELINES
     Route: 042
     Dates: start: 20121206, end: 20121206
  2. PRIVIGEN [Suspect]
     Dosage: PER MFG GUIDELINES
     Route: 042
     Dates: start: 20121206, end: 20121206
  3. PRIVIGEN [Suspect]
     Indication: IMMUNODEFICIENCY COMMON VARIABLE
     Dosage: PER MFG GUIDELINES
     Route: 042
     Dates: start: 20121206, end: 20121206
  4. PRIVIGEN [Suspect]
     Dosage: 26 ML/HR X 30 MIN., 103 ML/HR X 15 MIN., 206 ML/HR FOR 15 MIN., 400 ML/HR X 54 MIN.
     Route: 042
     Dates: start: 20130206, end: 20130206
  5. PRIVIGEN [Suspect]
     Dosage: 26 ML/HR X 30 MIN., 103 ML/HR X 15 MIN., 206 ML/HR FOR 15 MIN., 400 ML/HR X 54 MIN.
     Route: 042
     Dates: start: 20130206, end: 20130206
  6. PRIVIGEN [Suspect]
     Route: 042
  7. PRIVIGEN [Suspect]
     Route: 042
  8. PRIVIGEN [Suspect]
     Dosage: AT LEAST OVER 4 HOURS
     Route: 042
  9. PRIVIGEN [Suspect]
     Dosage: AT LEAST OVER 4 HOURS
     Route: 042
  10. PRIVIGEN [Suspect]
     Dosage: 5 GM VIAL;INFUSE PER MANUFACTURER RECOMMENDATIONS-OVER FOUR HOURS
     Route: 042
  11. PRIVIGEN [Suspect]
     Dosage: 20 GM VIAL;INFUSE PER MANUFACTURER RECOMMENDATIONS-OVER FOUR HOURS
     Route: 042
  12. PRIVIGEN [Suspect]
     Dosage: 5 GM VIAL
     Route: 042
  13. PRIVIGEN [Suspect]
     Dosage: 20 GM VIAL
     Route: 042
  14. ACETAMINOPHEN [Concomitant]
  15. DIPHENHYDRAMINE [Concomitant]
     Indication: PREMEDICATION
  16. SODIUM CHLORIDE [Concomitant]
  17. EPI-PEN [Concomitant]
     Indication: PREMEDICATION
  18. DORIBAX [Concomitant]
  19. OXCARBAZEPINE [Concomitant]
  20. PREDNISONE [Concomitant]
  21. LAMOTRIGINE [Concomitant]
  22. CLONAZEPAM [Concomitant]
  23. TERBINEX [Concomitant]
  24. ONDANSETRON [Concomitant]

REACTIONS (11)
  - Transient ischaemic attack [Unknown]
  - Pneumonia [Recovered/Resolved]
  - Pain [Unknown]
  - Headache [Unknown]
  - Headache [Unknown]
  - Chest pain [Unknown]
  - Hyperhidrosis [Unknown]
  - Chest pain [Unknown]
  - Heart rate increased [Unknown]
  - Chest pain [Unknown]
  - Pain [Unknown]
